FAERS Safety Report 16892938 (Version 1)
Quarter: 2019Q4

REPORT INFORMATION
  Report Type: Report from Study
  Country: None (occurrence: NL)
  Receive Date: 20191007
  Receipt Date: 20191007
  Transmission Date: 20200122
  Serious: Yes (Hospitalization)
  Sender: FDA-Public Use
  Company Number: NL-ABBVIE-19K-114-2949728-00

PATIENT
  Age: 2 Month
  Sex: Male
  Weight: 5.58 kg

DRUGS (2)
  1. SYNAGIS [Suspect]
     Active Substance: PALIVIZUMAB
     Indication: HEART DISEASE CONGENITAL
     Route: 030
     Dates: start: 20190903, end: 20190903
  2. SYNAGIS [Suspect]
     Active Substance: PALIVIZUMAB
     Indication: HAEMODYNAMIC INSTABILITY
     Route: 030
     Dates: start: 20191001, end: 20191001

REACTIONS (1)
  - Feeding disorder [Unknown]

NARRATIVE: CASE EVENT DATE: 201909
